FAERS Safety Report 8896374 (Version 2)
Quarter: 2012Q4

REPORT INFORMATION
  Report Type: Spontaneous
  Country: US (occurrence: None)
  Receive Date: 20121101
  Receipt Date: 20121101
  Transmission Date: 20130627
  Serious: Yes (Other)
  Sender: FDA-Public Use
  Company Number: US-1194787

PATIENT
  Sex: Female

DRUGS (2)
  1. MYDRIACYL [Suspect]
     Route: 047
     Dates: start: 2009
  2. ALCAINE [Suspect]
     Route: 047
     Dates: start: 2009

REACTIONS (6)
  - Loss of consciousness [None]
  - Palpitations [None]
  - Dyspnoea [None]
  - Tremor [None]
  - Vomiting [None]
  - Influenza [None]
